FAERS Safety Report 4532144-8 (Version None)
Quarter: 2004Q4

REPORT INFORMATION
  Report Type: 
  Country: None (occurrence: None)
  Receive Date: 20041217
  Receipt Date: 20041206
  Transmission Date: 20050328
  Serious: Yes (Hospitalization, Other)
  Sender: FDA-Public Use
  Company Number: 00/00290-FRA

PATIENT
  Age: 63 Year
  Sex: Male
  Weight: 75 kg

DRUGS (3)
  1. FLUDARABINE+CYCLOPHOSPHAMIDE (FLUDARABINE ORAL+CYCLOPHOSPHAMIDE) (FLUD [Suspect]
     Indication: CHRONIC LYMPHOCYTIC LEUKAEMIA
     Dosage: RESPECTIVELY 30 MG/M2, AND 200 MG , ORAL
     Route: 048
     Dates: start: 20000411, end: 20000515
  2. ESBERIVEN (MELILOTUS OFFICINALIS, RUTOSIDE) [Concomitant]
  3. FIFFU K [Concomitant]

REACTIONS (11)
  - C-REACTIVE PROTEIN INCREASED [None]
  - CHILLS [None]
  - COUGH [None]
  - HAEMOLYTIC ANAEMIA [None]
  - HYPOGAMMAGLOBULINAEMIA [None]
  - LEUKOPENIA [None]
  - LYMPHOPENIA [None]
  - NASOPHARYNGITIS [None]
  - NEUTROPENIA [None]
  - PLATELET COUNT DECREASED [None]
  - PYREXIA [None]
